FAERS Safety Report 11266913 (Version 3)
Quarter: 2015Q3

REPORT INFORMATION
  Report Type: Report from Study
  Country: DE (occurrence: DE)
  Receive Date: 20150713
  Receipt Date: 20150724
  Transmission Date: 20151125
  Serious: Yes (Death, Hospitalization, Other)
  Sender: FDA-Public Use
  Company Number: DE-ABBVIE-13P-062-1038214-00

PATIENT
  Age: 58 Year
  Sex: Male

DRUGS (2)
  1. LEUPRORELIN [Suspect]
     Active Substance: LEUPROLIDE ACETATE
     Indication: PROSTATE CANCER
     Dosage: 3.75 MG, MONTHLY
     Route: 058
     Dates: start: 20120817, end: 20120817
  2. SIXANTONE [Suspect]
     Active Substance: LEUPROLIDE ACETATE
     Indication: PROSTATE CANCER
     Dosage: 30 MG, Q6MONTHS
     Route: 058
     Dates: start: 20121210, end: 20121210

REACTIONS (5)
  - Hormone-refractory prostate cancer [Unknown]
  - Prostate cancer [Fatal]
  - Metastatic pain [Unknown]
  - Blood alkaline phosphatase increased [Recovered/Resolved]
  - Drug ineffective [Unknown]

NARRATIVE: CASE EVENT DATE: 20121207
